FAERS Safety Report 11598429 (Version 1)
Quarter: 2015Q3

REPORT INFORMATION
  Report Type: Spontaneous
  Country: US (occurrence: US)
  Receive Date: 20150916
  Receipt Date: 20150916
  Transmission Date: 20151125
  Serious: No
  Sender: FDA-Public Use
  Company Number: US-ELI_LILLY_AND_COMPANY-US200712003421

PATIENT
  Age: 55 Year
  Sex: Female

DRUGS (2)
  1. FORTEO [Suspect]
     Active Substance: TERIPARATIDE
     Route: 058
     Dates: start: 2007
  2. FORTEO [Suspect]
     Active Substance: TERIPARATIDE
     Dosage: UNK, UNK
     Route: 058
     Dates: start: 200706, end: 200708

REACTIONS (6)
  - Urticaria [Recovered/Resolved]
  - Dermatitis contact [Recovered/Resolved]
  - Endodontic procedure [Not Recovered/Not Resolved]
  - Dental prosthesis placement [Not Recovered/Not Resolved]
  - Oral pain [Not Recovered/Not Resolved]
  - Tooth fracture [Not Recovered/Not Resolved]

NARRATIVE: CASE EVENT DATE: 200706
